FAERS Safety Report 6693009-9 (Version None)
Quarter: 2010Q2

REPORT INFORMATION
  Report Type: 
  Country: None (occurrence: None)
  Receive Date: 20100422
  Receipt Date: 20100413
  Transmission Date: 20101027
  Serious: Yes (Hospitalization)
  Sender: FDA-Public Use
  Company Number: GB-ABBOTT-10P-167-0638012-00

PATIENT
  Sex: Female

DRUGS (2)
  1. RITONAVIR SOFT GELATIN CAPSULES [Suspect]
     Indication: ANTIRETROVIRAL THERAPY
     Dosage: 100
  2. REYATAZ [Suspect]
     Indication: ANTIRETROVIRAL THERAPY
     Dosage: 300

REACTIONS (2)
  - BRAIN OEDEMA [None]
  - MALIGNANT HYPERTENSION [None]
